FAERS Safety Report 8406619-5 (Version None)
Quarter: 2012Q2

REPORT INFORMATION
  Report Type: 
  Country: None (occurrence: None)
  Receive Date: 20120604
  Receipt Date: 20120523
  Transmission Date: 20120825
  Serious: Yes (Hospitalization, Other)
  Sender: FDA-Public Use
  Company Number: US-ELI_LILLY_AND_COMPANY-US201008002248

PATIENT
  Sex: Female
  Weight: 55.329 kg

DRUGS (28)
  1. METOPROLOL SUCCINATE [Concomitant]
     Dosage: 12.5 MG, DAILY (1/D)
  2. TYLENOL (CAPLET) [Concomitant]
     Dosage: 500 MG, AS NEEDED
  3. VITAMIN B3 [Concomitant]
  4. VITAMIN C [Concomitant]
     Dosage: 500 MG, QD
     Route: 065
  5. METRONIDAZOLE [Concomitant]
     Dosage: UNK UNK, BID
     Route: 061
  6. FORTEO [Suspect]
     Indication: OSTEOPOROSIS
     Dosage: 20 UG, DAILY (1/D)
  7. FORTEO [Suspect]
     Dosage: 20 UG, DAILY (1/D)
  8. CALCIUM +VIT D [Concomitant]
     Route: 065
  9. FORTEO [Suspect]
     Dosage: 20 UG, DAILY (1/D)
  10. FORTEO [Suspect]
     Dosage: 20 UG, QD
  11. BENICAR HCT [Concomitant]
     Dosage: 40/12.5MG, QD
  12. VITAMIN B-12 [Concomitant]
     Dosage: 500 UG, QD
  13. ALBUTEROL [Concomitant]
  14. FORTEO [Suspect]
     Dosage: 20 UG, QD
     Dates: end: 20120515
  15. LOVASTATIN [Concomitant]
     Dosage: 1 D/F, EACH EVENING
  16. MULTI-VITAMIN [Concomitant]
     Dosage: UNK, QD
  17. SYMBICORT [Concomitant]
     Dosage: 80/4.5, 2 PUFFS TWICE A DAYUNK, BID
     Route: 065
  18. FORTEO [Suspect]
     Dosage: 20 UG, QD
     Route: 065
  19. PRILOSEC [Concomitant]
     Dosage: 1 D/F, DAILY (1/D)
  20. CALCIUM [Concomitant]
  21. SPIRIVA [Concomitant]
     Dosage: 1 D/F, DAILY (1/D)
  22. CLONAZEPAM [Concomitant]
     Dosage: 10 MG, EACH EVENING
  23. CALCIUM W/MAGNESIUM/ZINC [Concomitant]
  24. MELATONIN [Concomitant]
     Indication: SLEEP DISORDER
     Dosage: 5 MG, EACH EVENING
  25. AUGMENTIN '125' [Concomitant]
     Dosage: 875/125 MG, BID FOR 7 DAYS
  26. PROAIR HFA [Concomitant]
     Dosage: 1 D/F, 2/D
     Route: 055
  27. CLONAZEPAM [Concomitant]
     Indication: MUSCLE SPASMS
     Dosage: 0.5 MG, EACH EVENING
  28. FOLIC ACID [Concomitant]
     Dosage: UNK, QD
     Route: 065

REACTIONS (25)
  - INFLUENZA [None]
  - MALAISE [None]
  - VISUAL IMPAIRMENT [None]
  - FATIGUE [None]
  - CHEST PAIN [None]
  - DIZZINESS [None]
  - PRODUCTIVE COUGH [None]
  - CHILLS [None]
  - MUSCLE SPASMS [None]
  - BRONCHITIS [None]
  - INFECTION [None]
  - ALOPECIA [None]
  - INFLUENZA LIKE ILLNESS [None]
  - PAIN IN EXTREMITY [None]
  - PNEUMONIA [None]
  - NAUSEA [None]
  - VISION BLURRED [None]
  - MYOCARDIAL INFARCTION [None]
  - HEART RATE INCREASED [None]
  - DEEP VEIN THROMBOSIS [None]
  - PULMONARY FIBROSIS [None]
  - BLOOD TEST ABNORMAL [None]
  - SPUTUM DISCOLOURED [None]
  - HYPOAESTHESIA [None]
  - SPEECH DISORDER [None]
